FAERS Safety Report 9160555 (Version 1)
Quarter: 2013Q1

REPORT INFORMATION
  Report Type: Spontaneous
  Country: US (occurrence: US)
  Receive Date: 20130313
  Receipt Date: 20130313
  Transmission Date: 20140127
  Serious: No
  Sender: FDA-Public Use
  Company Number: US-ABBOTT-13P-163-1051160-00

PATIENT
  Sex: Male
  Weight: 95.34 kg

DRUGS (5)
  1. DEPAKOTE [Suspect]
     Indication: BIPOLAR DISORDER
     Dosage: 2000 MG DAILY; 2 IN AM AND 2 IN EVENING
     Route: 048
     Dates: start: 1966
  2. DEPAKOTE [Suspect]
     Indication: EPILEPSY
  3. PHENOBARBITAL [Concomitant]
     Indication: CONVULSION
  4. CLONAZEPAM [Concomitant]
     Indication: EPILEPSY
  5. VITAMINS [Concomitant]
     Indication: VITAMIN SUPPLEMENTATION

REACTIONS (2)
  - Tremor [Not Recovered/Not Resolved]
  - Somnolence [Not Recovered/Not Resolved]
